FAERS Safety Report 8859835 (Version 1)
Quarter: 2012Q4

REPORT INFORMATION
  Report Type: Report from Study
  Country: US (occurrence: US)
  Receive Date: 20121025
  Receipt Date: 20121025
  Transmission Date: 20130627
  Serious: No
  Sender: FDA-Public Use
  Company Number: US-ABBOTT-11P-163-0867918-00

PATIENT
  Age: 33 None
  Sex: Female
  Weight: 90.8 kg

DRUGS (6)
  1. LUPRON DEPOT 3.75 MG [Suspect]
     Indication: ENDOMETRIOSIS
     Route: 050
     Dates: start: 201110
  2. NORETHINDRONE [Concomitant]
     Indication: ENDOMETRIOSIS
     Route: 048
     Dates: start: 20111024
  3. CYMBALTA [Concomitant]
     Indication: DEPRESSION
  4. NEXIUM [Concomitant]
     Indication: GASTROOESOPHAGEAL REFLUX DISEASE
  5. ADDERALL XR [Concomitant]
     Indication: FATIGUE
  6. XANAX [Concomitant]
     Indication: ANXIETY

REACTIONS (4)
  - Muscle spasms [Not Recovered/Not Resolved]
  - Vomiting [Not Recovered/Not Resolved]
  - Nausea [Recovered/Resolved]
  - Dysmenorrhoea [Recovered/Resolved]
